FAERS Safety Report 4730605-X (Version None)
Quarter: 2005Q3

REPORT INFORMATION
  Report Type: 
  Country: None (occurrence: None)
  Receive Date: 20050801
  Receipt Date: 20050720
  Transmission Date: 20060218
  Serious: Yes (Hospitalization)
  Sender: FDA-Public Use
  Company Number: FR-SANOFI-SYNTHELABO-F01200501327

PATIENT
  Sex: Female
  Weight: 67 kg

DRUGS (3)
  1. OXALIPLATIN [Suspect]
     Indication: OVARIAN CANCER
     Route: 033
     Dates: start: 20050623, end: 20050623
  2. LEVOTHYROX [Concomitant]
  3. HEPARIN [Concomitant]

REACTIONS (2)
  - HAEMOGLOBIN DECREASED [None]
  - PERITONEAL HAEMORRHAGE [None]
